FAERS Safety Report 6043948-7 (Version None)
Quarter: 2009Q1

REPORT INFORMATION
  Report Type: 
  Country: None (occurrence: None)
  Receive Date: 20090120
  Receipt Date: 20090115
  Transmission Date: 20090719
  Serious: Yes (Hospitalization)
  Sender: FDA-Public Use
  Company Number: US-BRISTOL-MYERS SQUIBB COMPANY-14381644

PATIENT
  Age: 7 Year
  Sex: Male

DRUGS (2)
  1. ABILIFY [Suspect]
     Indication: BIPOLAR DISORDER
     Dosage: 3-4 YEARS AGO
     Route: 048
  2. ADDERALL 10 [Suspect]
     Dosage: HIGH DOSES 100-120 MG

REACTIONS (1)
  - NEUROLEPTIC MALIGNANT SYNDROME [None]
